FAERS Safety Report 24674445 (Version 1)
Quarter: 2024Q4

REPORT INFORMATION
  Report Type: Spontaneous
  Country: TR (occurrence: TR)
  Receive Date: 20241128
  Receipt Date: 20241128
  Transmission Date: 20250115
  Serious: Yes (Hospitalization, Other)
  Sender: MACLEODS
  Company Number: TR-MACLEODS PHARMA-MAC2024050423

PATIENT

DRUGS (1)
  1. DONEPEZIL [Suspect]
     Active Substance: DONEPEZIL
     Indication: Product used for unknown indication
     Route: 065

REACTIONS (2)
  - Sinus node dysfunction [Recovered/Resolved]
  - Atrioventricular block second degree [Recovered/Resolved]
